FAERS Safety Report 16849251 (Version 1)
Quarter: 2019Q4

REPORT INFORMATION
  Report Type: Spontaneous
  Country: US (occurrence: US)
  Receive Date: 20190924
  Receipt Date: 20190924
  Transmission Date: 20200122
  Serious: No
  Sender: FDA-Public Use
  Company Number: None

PATIENT
  Age: 13 Year
  Sex: Male
  Weight: 32.85 kg

DRUGS (10)
  1. LAMOTRIGINE. [Suspect]
     Active Substance: LAMOTRIGINE
     Indication: SEIZURE
     Route: 048
     Dates: start: 20180611
  2. OMEPRAZOLE 2MG/ML [Concomitant]
     Active Substance: OMEPRAZOLE
  3. PHOS-NAK POWDER CONCENTRATE [Concomitant]
  4. CALCIUM CARB SUS 1250MG/5 ML [Concomitant]
  5. POLYETH GLYC POWDER 3350NF [Concomitant]
  6. LAMOTRIGINE 25MG [Concomitant]
     Active Substance: LAMOTRIGINE
  7. NITROFURANTOIN MACRO 50MG [Concomitant]
  8. PHENOBARBITAL 32.4 MG [Concomitant]
     Active Substance: PHENOBARBITAL
  9. LEVETIRACETAM 500MG [Concomitant]
     Active Substance: LEVETIRACETAM
  10. VIT D3 1000U [Concomitant]

REACTIONS (2)
  - Seizure [None]
  - Product substitution issue [None]

NARRATIVE: CASE EVENT DATE: 20190913
